FAERS Safety Report 8876598 (Version 1)
Quarter: 2012Q4

REPORT INFORMATION
  Report Type: 
  Country: US (occurrence: US)
  Receive Date: 20121023
  Receipt Date: 20121023
  Transmission Date: 20130627
  Serious: Yes (Hospitalization, Other)
  Sender: FDA-Public Use
  Company Number: US-ASTELLAS-2012US008147

PATIENT
  Age: 57 Year
  Sex: Male

DRUGS (1)
  1. PROGRAF [Suspect]
     Indication: LIVER TRANSPLANT
     Dosage: 2 mg, bid
     Route: 048

REACTIONS (5)
  - Infection [Unknown]
  - Hepatic enzyme increased [Unknown]
  - Biopsy liver [Unknown]
  - Weight decreased [Unknown]
  - Diarrhoea [Unknown]
